FAERS Safety Report 7555081-3 (Version None)
Quarter: 2011Q2

REPORT INFORMATION
  Report Type: 
  Country: None (occurrence: None)
  Receive Date: 20110617
  Receipt Date: 20110601
  Transmission Date: 20111010
  Serious: No
  Sender: FDA-Public Use
  Company Number: US-B.I. PHARMACEUTICALS,INC./RIDGEFIELD-2011-BP-02392BP

PATIENT
  Sex: Male

DRUGS (32)
  1. FISH OIL [Concomitant]
     Route: 048
     Dates: start: 20100623
  2. FISH OIL [Concomitant]
     Route: 048
     Dates: start: 20100928
  3. ASPIRIN [Concomitant]
     Route: 048
     Dates: start: 20100928
  4. PRADAXA [Suspect]
     Indication: ATRIAL FIBRILLATION
     Dosage: 300 MG
     Route: 048
     Dates: start: 20110114
  5. CRESTOR [Concomitant]
     Indication: LOW DENSITY LIPOPROTEIN
     Dates: start: 20100106
  6. LOVAZA [Concomitant]
     Route: 048
     Dates: start: 20100623
  7. GLUCOSAMINE [Concomitant]
     Route: 048
     Dates: start: 20100623
  8. BYSTOLIC [Concomitant]
     Dates: start: 20110114
  9. LISINOPRIL [Concomitant]
     Indication: BLOOD PRESSURE
     Route: 048
     Dates: start: 20100623
  10. GLUCOSAMINE [Concomitant]
  11. LISINOPRIL [Concomitant]
     Indication: HYPERTENSION
     Dates: start: 20091127
  12. BENICAR [Concomitant]
     Route: 048
     Dates: start: 20100623
  13. LOVAZA [Concomitant]
  14. LOVAZA [Concomitant]
     Route: 048
     Dates: start: 20100928
  15. CRESTOR [Concomitant]
     Indication: BLOOD CHOLESTEROL INCREASED
     Dosage: 40 MG
     Dates: start: 20091127
  16. MULTI-VITAMIN [Concomitant]
  17. VIT D [Concomitant]
     Route: 048
     Dates: start: 20100928
  18. BENICAR [Concomitant]
     Dosage: 20 MG
     Dates: start: 20110506
  19. HYDROCHLOROTHIAZIDE [Concomitant]
     Indication: HYPERTENSION
     Dosage: 25 MG
     Dates: start: 20101007
  20. FISH OIL [Concomitant]
  21. MULTI-VITAMIN [Concomitant]
     Route: 048
     Dates: start: 20100928
  22. VIT D [Concomitant]
     Dosage: 800 MG
  23. BENICAR [Concomitant]
     Route: 048
     Dates: start: 20100928
  24. BYSTOLIC [Concomitant]
     Dates: start: 20100831
  25. LISINOPRIL [Concomitant]
     Indication: RENAL DISORDER
     Route: 048
     Dates: start: 20100928
  26. ASPIRIN [Concomitant]
     Route: 048
     Dates: start: 20100623
  27. VIT D [Concomitant]
     Route: 048
     Dates: start: 20100623
  28. GLUCOSAMINE [Concomitant]
     Route: 048
     Dates: start: 20100928
  29. HYDROCHLOROTHIAZIDE [Concomitant]
     Indication: FLUID RETENTION
  30. BYSTOLIC [Concomitant]
     Indication: HYPERTENSION
     Dates: start: 20100825
  31. MULTI-VITAMIN [Concomitant]
     Route: 048
     Dates: start: 20100623
  32. ASPIRIN [Concomitant]
     Dosage: 81 MG

REACTIONS (2)
  - FAECES DISCOLOURED [None]
  - FREQUENT BOWEL MOVEMENTS [None]
